FAERS Safety Report 15323208 (Version 2)
Quarter: 2018Q4

REPORT INFORMATION
  Report Type: Spontaneous
  Country: IR (occurrence: IR)
  Receive Date: 20180827
  Receipt Date: 20181009
  Transmission Date: 20190204
  Serious: Yes (Hospitalization, Other)
  Sender: FDA-Public Use
  Company Number: IR-BAUSCH-BL-2018-022557

PATIENT
  Age: 32 Year
  Sex: Female

DRUGS (2)
  1. PREDNISOLONE. [Suspect]
     Active Substance: PREDNISOLONE
     Indication: ABORTION SPONTANEOUS
     Route: 048
  2. BETAMETHASONE. [Suspect]
     Active Substance: BETAMETHASONE
     Indication: MATERNAL THERAPY TO ENHANCE FOETAL LUNG MATURITY
     Dosage: ANTENATAL BETAMETHASONE INJECTIONS
     Route: 065

REACTIONS (3)
  - Osteoporosis [Recovering/Resolving]
  - Femoral neck fracture [Recovered/Resolved]
  - Maternal exposure during pregnancy [Recovering/Resolving]
